FAERS Safety Report 9621366 (Version 1)
Quarter: 2013Q4

REPORT INFORMATION
  Report Type: Spontaneous
  Country: US (occurrence: US)
  Receive Date: 20131015
  Receipt Date: 20131015
  Transmission Date: 20140711
  Serious: No
  Sender: FDA-Public Use
  Company Number: US-PFIZER INC-2013292772

PATIENT
  Age: 47 Year
  Sex: Male
  Weight: 104.31 kg

DRUGS (8)
  1. XELJANZ [Suspect]
     Indication: RHEUMATOID ARTHRITIS
     Dosage: 5MG (1 TABLET) TWICE DAILY
     Route: 048
  2. FOLIC ACID [Concomitant]
     Dosage: UNK
  3. BAYER CHILDREN^S ASPIRIN [Concomitant]
     Dosage: 81 MG
  4. METHOTREXATE [Concomitant]
     Dosage: 2.5 MG
  5. CARVEDILOL [Concomitant]
     Dosage: 12.5 MG
  6. LISINOPRIL [Concomitant]
     Dosage: 5 MG
  7. HYDROXYCHLOROQUINE [Concomitant]
     Dosage: 200 MG
  8. PREDNISONE [Concomitant]
     Dosage: 1 MG

REACTIONS (2)
  - Change of bowel habit [Unknown]
  - Arthralgia [Unknown]
